FAERS Safety Report 8452161-5 (Version None)
Quarter: 2012Q2

REPORT INFORMATION
  Report Type: 
  Country: None (occurrence: None)
  Receive Date: 20120620
  Receipt Date: 20120612
  Transmission Date: 20120825
  Serious: Yes (Other)
  Sender: FDA-Public Use
  Company Number: JP-GLAXOSMITHKLINE-B0795326A

PATIENT
  Age: 76 Year
  Sex: Female
  Weight: 46 kg

DRUGS (8)
  1. EPINASTINE HYDROCHLORIDE [Concomitant]
     Dosage: 40MG PER DAY
     Route: 048
  2. LAMICTAL [Suspect]
     Dosage: 100MG PER DAY
     Route: 048
     Dates: start: 20111021, end: 20111026
  3. VFEND [Suspect]
     Indication: SYSTEMIC CANDIDA
     Dosage: 400MG PER DAY
     Route: 042
     Dates: start: 20111114, end: 20111117
  4. ASPIRIN [Concomitant]
     Dosage: 100MG PER DAY
     Route: 048
  5. WARFARIN SODIUM [Concomitant]
     Route: 048
  6. CEFAZOLIN SODIUM [Concomitant]
     Dosage: 3IUAX PER DAY
     Route: 048
  7. LAMICTAL [Suspect]
     Indication: EPILEPSY
     Dosage: 50MG PER DAY
     Route: 048
     Dates: start: 20111018, end: 20111020
  8. CLONAZEPAM [Suspect]
     Indication: EPILEPSY
     Dosage: 1.5MG PER DAY
     Route: 048
     Dates: end: 20111117

REACTIONS (3)
  - SYSTEMIC CANDIDA [None]
  - WHITE BLOOD CELL COUNT DECREASED [None]
  - NEUTROPHIL COUNT DECREASED [None]
